FAERS Safety Report 9301803 (Version 1)
Quarter: 2012Q4

REPORT INFORMATION
  Report Type: Spontaneous
  Country: DE (occurrence: None)
  Receive Date: 20121109
  Receipt Date: 20121109
  Transmission Date: 20130627
  Serious: Yes (Other)
  Sender: FDA-Public Use
  Company Number: 2012S1000438

PATIENT
  Age: 56 Year
  Sex: Male
  Weight: 92 kg

DRUGS (2)
  1. CUBICIN (DAPTOMYCIN) [Suspect]
     Indication: DEVICE RELATED INFECTION
     Route: 042
     Dates: start: 20120203, end: 20120213
  2. HMG COA REDUCTASE INHIBITORS [Concomitant]

REACTIONS (1)
  - No adverse event [None]
